FAERS Safety Report 9511582 (Version 1)
Quarter: 2013Q1

REPORT INFORMATION
  Report Type: Spontaneous
  Country: US (occurrence: None)
  Receive Date: 20130305
  Receipt Date: 20130305
  Transmission Date: 20140127
  Serious: Yes (Other)
  Sender: FDA-Public Use
  Company Number: 163-21880-12103401

PATIENT
  Age: 54 Year
  Sex: Male
  Weight: 112.95 kg

DRUGS (9)
  1. REVLIMID [Suspect]
     Indication: PLASMA CELL MYELOMA
     Dosage: 25 MG, 1 IN 1 D, PO
     Route: 048
     Dates: start: 20120215
  2. AMITRIPTYLINE [Concomitant]
  3. CENTRUM SILVER [Concomitant]
  4. HYDROCODONE [Concomitant]
  5. LEVOTHYROXIN [Concomitant]
  6. RAPAMUNE [Concomitant]
  7. VITAMIN B12 [Concomitant]
  8. VITAMIN B6 [Concomitant]
  9. ZOMETA (ZOLEDRONIC ACID) (UNKNOWN) [Concomitant]

REACTIONS (1)
  - Deep vein thrombosis [None]
